FAERS Safety Report 13905581 (Version 1)
Quarter: 2017Q3

REPORT INFORMATION
  Report Type: Spontaneous
  Country: MA (occurrence: MA)
  Receive Date: 20170825
  Receipt Date: 20170825
  Transmission Date: 20171127
  Serious: Yes (Death, Other)
  Sender: FDA-Public Use
  Company Number: MA-CASPER PHARMA LLC-2017SEB00386

PATIENT
  Age: 59 Year
  Sex: Male

DRUGS (1)
  1. ALLOPURINOL. [Suspect]
     Active Substance: ALLOPURINOL
     Indication: HYPERURICAEMIA
     Dosage: 400 MG, 1X/DAY
     Route: 065

REACTIONS (4)
  - Drug reaction with eosinophilia and systemic symptoms [Unknown]
  - Myocarditis [Fatal]
  - Cardiac failure [Fatal]
  - Cardiac arrest [Fatal]
